FAERS Safety Report 11866550 (Version 1)
Quarter: 2015Q4

REPORT INFORMATION
  Report Type: Spontaneous
  Country: GB (occurrence: GB)
  Receive Date: 20151224
  Receipt Date: 20151224
  Transmission Date: 20160305
  Serious: Yes (Other)
  Sender: FDA-Public Use
  Company Number: GB-ACCORD-036509

PATIENT
  Age: 69 Year
  Sex: Female
  Weight: 99 kg

DRUGS (16)
  1. METHOTREXATE [Suspect]
     Active Substance: METHOTREXATE
     Indication: PRODUCT USED FOR UNKNOWN INDICATION
     Dates: start: 20150727
  2. SITAGLIPTIN/SITAGLIPTIN PHOSPHATE [Concomitant]
     Dates: start: 20140909
  3. BIMATOPROST. [Concomitant]
     Active Substance: BIMATOPROST
     Dosage: ONE DROP AT NIGHT TO RIGHT EYE
     Route: 047
     Dates: start: 20140909
  4. SALBUTAMOL [Concomitant]
     Active Substance: ALBUTEROL
     Dosage: AS NECESSARY
     Route: 055
     Dates: start: 20151103
  5. ARCOXIA [Concomitant]
     Active Substance: ETORICOXIB
     Dates: start: 20151103
  6. DULOXETINE. [Concomitant]
     Active Substance: DULOXETINE
     Dates: start: 20140909
  7. FLUTICASONE [Concomitant]
     Active Substance: FLUTICASONE\FLUTICASONE PROPIONATE
     Route: 055
     Dates: start: 20151103
  8. ZAPAIN [Concomitant]
     Active Substance: ACETAMINOPHEN\CODEINE PHOSPHATE
     Dosage: TAKE 1 OR 2, FOUR TIMES DAILY AS NEEDED
     Dates: start: 20140909
  9. BENDROFLUMETHIAZIDE [Concomitant]
     Active Substance: BENDROFLUMETHIAZIDE
     Dosage: IN THE MORNING
     Dates: start: 20140909
  10. GLICLAZIDE [Concomitant]
     Active Substance: GLICLAZIDE
     Dosage: IN THE EVENING TOGETHER WITH 40MG
     Dates: start: 20140909, end: 20151116
  11. METFORMIN [Concomitant]
     Active Substance: METFORMIN HYDROCHLORIDE
     Dosage: WITH EVENING MEAL
     Dates: start: 20140909
  12. PREGABALIN. [Concomitant]
     Active Substance: PREGABALIN
     Dates: start: 20140909
  13. CANAGLIFLOZIN [Concomitant]
     Active Substance: CANAGLIFLOZIN
     Dates: start: 20151116
  14. FOLIC ACID. [Concomitant]
     Active Substance: FOLIC ACID
     Dates: start: 20150629
  15. HYDROXYCHLOROQUINE [Concomitant]
     Active Substance: HYDROXYCHLOROQUINE
     Dates: start: 20140909
  16. LANSOPRAZOLE. [Concomitant]
     Active Substance: LANSOPRAZOLE
     Dosage: AS NECESSARY
     Dates: start: 20140909

REACTIONS (1)
  - Suicidal ideation [Recovered/Resolved]

NARRATIVE: CASE EVENT DATE: 20151207
